FAERS Safety Report 10039303 (Version 1)
Quarter: 2014Q1

REPORT INFORMATION
  Report Type: Report from Study
  Country: US (occurrence: US)
  Receive Date: 20140326
  Receipt Date: 20140326
  Transmission Date: 20141002
  Serious: Yes (Hospitalization)
  Sender: FDA-Public Use
  Company Number: PHEH2014US005703

PATIENT
  Sex: Male

DRUGS (1)
  1. TOBI [Suspect]
     Indication: CYSTIC FIBROSIS
     Dosage: 300/5 MG/ML BID
     Route: 055
     Dates: start: 201211

REACTIONS (2)
  - Cystic fibrosis [Unknown]
  - Condition aggravated [Unknown]
